FAERS Safety Report 24045159 (Version 2)
Quarter: 2024Q3

REPORT INFORMATION
  Report Type: Report from Study
  Country: CA (occurrence: CA)
  Receive Date: 20240703
  Receipt Date: 20240730
  Transmission Date: 20241017
  Serious: Yes (Other)
  Sender: UCB
  Company Number: CA-UCBSA-2023039093

PATIENT
  Sex: Female

DRUGS (6)
  1. BIMEKIZUMAB [Suspect]
     Active Substance: BIMEKIZUMAB
     Indication: Psoriasis
     Dosage: 320 MILLIGRAM, EV 4 WEEKSX4
     Route: 058
     Dates: start: 20230321
  2. BIMEKIZUMAB [Suspect]
     Active Substance: BIMEKIZUMAB
     Dosage: 320 MILLIGRAM, EV 4 WEEKSX4, MAINTENANCE DOSE
     Route: 058
     Dates: end: 2024
  3. BIMEKIZUMAB [Suspect]
     Active Substance: BIMEKIZUMAB
     Dosage: 320 MILLIGRAM, EV 4 WEEKSX4
     Route: 058
     Dates: start: 20240528
  4. SODIUM METABISULFITE [Concomitant]
     Active Substance: SODIUM METABISULFITE
     Indication: Product used for unknown indication
     Dosage: UNK
  5. NICKEL [Concomitant]
     Active Substance: NICKEL
     Indication: Product used for unknown indication
     Dosage: UNK
  6. PRAMOXINE [Concomitant]
     Active Substance: PRAMOXINE
     Indication: Product used for unknown indication
     Dosage: UNK

REACTIONS (7)
  - Suicidal ideation [Unknown]
  - Psoriasis [Recovering/Resolving]
  - Dry mouth [Unknown]
  - Candida infection [Unknown]
  - Tooth loss [Unknown]
  - Off label use [Unknown]
  - Inappropriate schedule of product administration [Unknown]

NARRATIVE: CASE EVENT DATE: 20230101
